FAERS Safety Report 18796509 (Version 1)
Quarter: 2021Q1

REPORT INFORMATION
  Report Type: Report from Study
  Country: HN (occurrence: HN)
  Receive Date: 20210127
  Receipt Date: 20210127
  Transmission Date: 20210419
  Serious: Yes (Other)
  Sender: FDA-Public Use
  Company Number: NVSC2021HN015928

PATIENT
  Age: 69 Year
  Sex: Male

DRUGS (1)
  1. CO?DIOVAN [Suspect]
     Active Substance: HYDROCHLOROTHIAZIDE\VALSARTAN
     Indication: CARDIAC DISORDER
     Dosage: UNK (160/25 MG, LIKE 8 OR 10 YEAR AGO)
     Route: 065
     Dates: start: 202011

REACTIONS (1)
  - Diabetes mellitus [Recovering/Resolving]
